FAERS Safety Report 9054947 (Version 2)
Quarter: 2013Q1

REPORT INFORMATION
  Report Type: Report from Study
  Country: CA (occurrence: CA)
  Receive Date: 20130208
  Receipt Date: 20130215
  Transmission Date: 20140127
  Serious: Yes (Death)
  Sender: FDA-Public Use
  Company Number: CA-PFIZER INC-2013038661

PATIENT
  Age: 76 Year
  Sex: Female
  Weight: 76.9 kg

DRUGS (7)
  1. BOSUTINIB [Suspect]
     Indication: CHRONIC MYELOID LEUKAEMIA
     Dosage: 500 MG, 1X/DAY
     Route: 048
     Dates: start: 20070510, end: 20121220
  2. BOSUTINIB [Suspect]
     Indication: CHROMOSOME ANALYSIS ABNORMAL
  3. LOSEC [Concomitant]
     Indication: GASTROOESOPHAGEAL REFLUX DISEASE
     Dosage: 20 MG, 1X/DAY
     Route: 048
     Dates: start: 1999
  4. TYLENOL [Concomitant]
     Indication: BONE PAIN
     Dosage: 325 MG, AS NEEDED
     Route: 048
     Dates: start: 200710
  5. ATIVAN [Concomitant]
     Indication: INSOMNIA
     Dosage: 0.5 MG, 1X/DAY AS NEEDED
     Dates: start: 200909
  6. NORVASC [Concomitant]
     Indication: HYPERTENSION
     Dosage: 10 MG, 1X/DAY
     Route: 048
     Dates: start: 20090915
  7. TUMS [Concomitant]
     Indication: GASTROOESOPHAGEAL REFLUX DISEASE
     Dosage: UNK, AS NEEDED
     Route: 048
     Dates: start: 20110905

REACTIONS (1)
  - Sudden death [Fatal]
